FAERS Safety Report 7960695-2 (Version None)
Quarter: 2011Q4

REPORT INFORMATION
  Report Type: 
  Country: None (occurrence: None)
  Receive Date: 20111206
  Receipt Date: 20111130
  Transmission Date: 20120403
  Serious: Yes (Other)
  Sender: FDA-Public Use
  Company Number: US-CELGENEUS-163-21880-11120102

PATIENT
  Sex: Male
  Weight: 128.03 kg

DRUGS (18)
  1. AMPICILLIN [Concomitant]
     Route: 065
  2. VITAMIN E [Concomitant]
     Route: 065
  3. CALCIUM +D [Concomitant]
     Route: 065
  4. CORICIDIN D SRT [Concomitant]
     Route: 065
  5. IRON [Concomitant]
     Route: 065
  6. OMEGA 3-6-9 [Concomitant]
     Route: 065
  7. GERITOL [Concomitant]
     Route: 065
  8. OXYCODONE HCL [Concomitant]
     Route: 065
  9. SANCTURA [Concomitant]
     Route: 065
  10. VITAMIN D [Concomitant]
     Route: 065
  11. TERAZOSIN [Concomitant]
     Route: 065
  12. REVLIMID [Suspect]
     Indication: MULTIPLE MYELOMA
     Dosage: 10 MILLIGRAM
     Route: 048
     Dates: start: 20110310
  13. LISINOPRIL [Concomitant]
     Route: 065
  14. LASIX [Concomitant]
     Route: 065
  15. KIDNEY CAP [Concomitant]
     Route: 065
  16. ASCORBIC ACID [Concomitant]
     Route: 065
  17. ATENOLOL [Concomitant]
     Route: 065
  18. MULTI-VITAMINS [Concomitant]
     Route: 065

REACTIONS (3)
  - ERYTHEMA [None]
  - FULL BLOOD COUNT ABNORMAL [None]
  - EYE DISORDER [None]
